FAERS Safety Report 17404302 (Version 9)
Quarter: 2020Q3

REPORT INFORMATION
  Report Type: Report from Study
  Country: HK (occurrence: HK)
  Receive Date: 20200211
  Receipt Date: 20200803
  Transmission Date: 20201104
  Serious: Yes (Death, Life-Threatening, Hospitalization)
  Sender: FDA-Public Use
  Company Number: NVSC2020HK035096

PATIENT
  Age: 49 Year
  Sex: Female
  Weight: 63 kg

DRUGS (84)
  1. LASIX [Concomitant]
     Active Substance: FUROSEMIDE
     Dosage: UNK
     Route: 065
     Dates: start: 20200206, end: 20200206
  2. DOXYCYCLINE HYCLATE. [Concomitant]
     Active Substance: DOXYCYCLINE HYCLATE
     Indication: PNEUMONIA
     Dosage: UNK
     Route: 065
     Dates: start: 20200112, end: 20200119
  3. DOXYCYCLINE HYCLATE. [Concomitant]
     Active Substance: DOXYCYCLINE HYCLATE
     Dosage: UNK
     Route: 065
     Dates: start: 20200203, end: 20200203
  4. VANCOMYCIN HCL [Concomitant]
     Active Substance: VANCOMYCIN HYDROCHLORIDE
     Indication: PNEUMONIA
     Dosage: UNK
     Route: 065
     Dates: start: 20200129, end: 20200205
  5. NEXIUM [Concomitant]
     Active Substance: ESOMEPRAZOLE MAGNESIUM
     Indication: GASTRIC ULCER
     Dosage: UNK
     Route: 065
     Dates: start: 20200215
  6. NORVASC [Concomitant]
     Active Substance: AMLODIPINE BESYLATE
     Indication: HYPERTENSION
     Dosage: UNK
     Route: 065
     Dates: start: 20200208, end: 20200208
  7. PEPCIDINE [Concomitant]
     Active Substance: FAMOTIDINE
     Indication: PROPHYLAXIS AGAINST GASTROINTESTINAL ULCER
     Dosage: UNK
     Route: 065
     Dates: start: 20191231, end: 20200205
  8. TRANSAMIN [Concomitant]
     Active Substance: TRANEXAMIC ACID
     Dosage: UNK
     Route: 065
     Dates: start: 20200201, end: 20200201
  9. PIRITON [Concomitant]
     Active Substance: CHLORPHENIRAMINE MALEATE
     Dosage: UNK
     Route: 065
     Dates: start: 20200112, end: 20200112
  10. PIRITON [Concomitant]
     Active Substance: CHLORPHENIRAMINE MALEATE
     Dosage: UNK
     Route: 065
     Dates: start: 20200114, end: 20200116
  11. LASIX [Concomitant]
     Active Substance: FUROSEMIDE
     Indication: PROPHYLAXIS
     Dosage: UNK
     Route: 065
     Dates: start: 20200107, end: 20200107
  12. AMBISOME [Concomitant]
     Active Substance: AMPHOTERICIN B
     Indication: ANTIFUNGAL TREATMENT
     Dosage: UNK
     Route: 065
     Dates: start: 20200202, end: 20200206
  13. ACE [Concomitant]
     Dosage: UNK
     Route: 065
     Dates: start: 20200206, end: 20200206
  14. MAXIPIME [Concomitant]
     Active Substance: CEFEPIME HYDROCHLORIDE
     Indication: PROPHYLAXIS
     Dosage: UNK
     Route: 065
     Dates: start: 20200206, end: 20200209
  15. LACTULOSE. [Concomitant]
     Active Substance: LACTULOSE
     Indication: CONSTIPATION
     Dosage: UNK
     Route: 065
     Dates: start: 20200211, end: 20200211
  16. AMPHOTERICIN B. [Concomitant]
     Active Substance: AMPHOTERICIN B
     Indication: PNEUMONIA
     Dosage: UNK
     Route: 065
     Dates: start: 20191031
  17. PIRITON [Concomitant]
     Active Substance: CHLORPHENIRAMINE MALEATE
     Dosage: UNK
     Route: 065
     Dates: start: 20200128, end: 20200129
  18. PIRITON [Concomitant]
     Active Substance: CHLORPHENIRAMINE MALEATE
     Dosage: UNK
     Route: 065
     Dates: start: 20200205, end: 20200205
  19. PIRITON [Concomitant]
     Active Substance: CHLORPHENIRAMINE MALEATE
     Dosage: UNK
     Route: 065
     Dates: start: 20200207
  20. MEROPENEM. [Concomitant]
     Active Substance: MEROPENEM
     Indication: FEBRILE NEUTROPENIA
     Dosage: UNK
     Route: 065
     Dates: start: 20200122, end: 20200128
  21. LASIX [Concomitant]
     Active Substance: FUROSEMIDE
     Dosage: UNK
     Route: 065
     Dates: start: 20200130, end: 20200130
  22. LASIX [Concomitant]
     Active Substance: FUROSEMIDE
     Dosage: UNK
     Route: 065
     Dates: start: 20200206, end: 20200207
  23. TRISILICATE [Concomitant]
     Indication: PROPHYLAXIS
     Dosage: UNK
     Route: 065
     Dates: start: 20200120, end: 20200126
  24. FLAGYL [Concomitant]
     Active Substance: METRONIDAZOLE\METRONIDAZOLE HYDROCHLORIDE
     Indication: DIARRHOEA
     Dosage: UNK
     Route: 065
     Dates: start: 20200120, end: 20200125
  25. ALBUMIN [Concomitant]
     Active Substance: ALBUMIN HUMAN
     Indication: PRODUCT USED FOR UNKNOWN INDICATION
     Dosage: UNK
     Route: 065
     Dates: start: 20200206, end: 20200206
  26. VALACICLOVIR HCL [Concomitant]
     Active Substance: VALACYCLOVIR HYDROCHLORIDE
     Indication: PROPHYLAXIS
     Dosage: UNK
     Route: 065
     Dates: start: 20200101, end: 20200107
  27. TRANSAMIN [Concomitant]
     Active Substance: TRANEXAMIC ACID
     Dosage: UNK
     Route: 065
     Dates: start: 20200205
  28. PIRITON [Concomitant]
     Active Substance: CHLORPHENIRAMINE MALEATE
     Dosage: UNK
     Route: 065
     Dates: start: 20200201, end: 20200203
  29. LASIX [Concomitant]
     Active Substance: FUROSEMIDE
     Dosage: UNK
     Route: 065
     Dates: start: 20200202, end: 20200206
  30. LASIX [Concomitant]
     Active Substance: FUROSEMIDE
     Dosage: UNK
     Route: 065
     Dates: start: 20200207, end: 20200208
  31. TIMENTIN [Concomitant]
     Active Substance: CLAVULANATE POTASSIUM\TICARCILLIN DISODIUM
     Indication: PNEUMONIA
     Dosage: UNK
     Route: 065
     Dates: start: 20200105, end: 20200109
  32. POTASSIUM CHLORIDE. [Concomitant]
     Active Substance: POTASSIUM CHLORIDE
     Indication: HYPOKALAEMIA
     Dosage: UNK
     Route: 065
     Dates: start: 20200203, end: 20200203
  33. ACE [Concomitant]
     Indication: PYREXIA
     Dosage: UNK
     Route: 065
     Dates: start: 20200205, end: 20200206
  34. PANTOLOC [Concomitant]
     Active Substance: PANTOPRAZOLE SODIUM
     Indication: PROPHYLAXIS
     Dosage: UNK
     Route: 065
     Dates: start: 20200206, end: 20200212
  35. VALIUM [Concomitant]
     Active Substance: DIAZEPAM
     Dosage: UNK
     Route: 065
     Dates: start: 20200210, end: 20200211
  36. ANIDULAFUNGIN [Concomitant]
     Active Substance: ANIDULAFUNGIN
     Indication: ANTIFUNGAL PROPHYLAXIS
     Dosage: UNK
     Route: 065
     Dates: start: 20200207
  37. RASBURICASE [Concomitant]
     Active Substance: RASBURICASE
     Indication: HYPERCALCAEMIA
  38. SABATOLIMAB. [Suspect]
     Active Substance: SABATOLIMAB
     Indication: MYELODYSPLASTIC SYNDROME
     Dosage: UNK
     Route: 042
     Dates: start: 20191021, end: 20200120
  39. DECITABINE. [Suspect]
     Active Substance: DECITABINE
     Indication: MYELODYSPLASTIC SYNDROME
     Dosage: 34 MG OTHER
     Route: 042
     Dates: start: 20191014, end: 20200103
  40. SLOW K [Concomitant]
     Active Substance: POTASSIUM CHLORIDE
     Indication: PROPHYLAXIS
     Dosage: UNK
     Route: 065
     Dates: start: 20191230, end: 20200206
  41. ZARZIO [Concomitant]
     Active Substance: FILGRASTIM
     Indication: NEUTROPENIA
     Dosage: UNK
     Route: 065
     Dates: start: 20200106, end: 20200106
  42. ZARZIO [Concomitant]
     Active Substance: FILGRASTIM
     Dosage: UNK
     Route: 065
     Dates: start: 20200126, end: 20200126
  43. TRANSAMIN [Concomitant]
     Active Substance: TRANEXAMIC ACID
     Indication: THROMBOCYTOPENIA
     Dosage: UNK
     Route: 065
     Dates: start: 20200105, end: 20200120
  44. TRANSAMIN [Concomitant]
     Active Substance: TRANEXAMIC ACID
     Dosage: UNK
     Route: 065
     Dates: start: 20200131, end: 20200131
  45. PIRITON [Concomitant]
     Active Substance: CHLORPHENIRAMINE MALEATE
     Dosage: UNK
     Route: 065
     Dates: start: 20200110, end: 20200111
  46. LASIX [Concomitant]
     Active Substance: FUROSEMIDE
     Dosage: UNK
     Route: 065
     Dates: start: 20200119, end: 20200119
  47. FORTUM [Concomitant]
     Active Substance: CEFTAZIDIME
     Indication: ANTIFUNGAL TREATMENT
     Dosage: UNK
     Route: 065
     Dates: start: 20200130, end: 20200203
  48. TRISILICATE [Concomitant]
     Dosage: UNK
     Route: 065
     Dates: start: 20200129, end: 20200201
  49. POTASSIUM CHLORIDE. [Concomitant]
     Active Substance: POTASSIUM CHLORIDE
     Dosage: UNK
     Route: 065
     Dates: start: 20200205, end: 20200205
  50. TRAMADOL HCL [Concomitant]
     Active Substance: TRAMADOL HYDROCHLORIDE
     Indication: PAIN
     Dosage: UNK
     Route: 065
     Dates: start: 20200204, end: 20200205
  51. FEBUXOSTAT. [Concomitant]
     Active Substance: FEBUXOSTAT
     Indication: PROPHYLAXIS
     Dosage: UNK
     Route: 065
     Dates: start: 20200206, end: 20200209
  52. VALIUM [Concomitant]
     Active Substance: DIAZEPAM
     Indication: AGITATION
     Dosage: UNK
     Route: 065
     Dates: start: 20200209, end: 20200209
  53. ACTRAPID [Concomitant]
     Active Substance: INSULIN HUMAN
     Indication: HYPERGLYCAEMIA
     Dosage: UNK
     Route: 065
     Dates: start: 20200213, end: 20200213
  54. ACTRAPID [Concomitant]
     Active Substance: INSULIN HUMAN
     Dosage: UNK
     Route: 065
     Dates: start: 20200213, end: 20200214
  55. ZARZIO [Concomitant]
     Active Substance: FILGRASTIM
     Dosage: UNK
     Route: 065
     Dates: start: 20200108, end: 20200119
  56. TRANSAMIN [Concomitant]
     Active Substance: TRANEXAMIC ACID
     Dosage: UNK
     Route: 065
     Dates: start: 20200129, end: 20200131
  57. PANADOL [Concomitant]
     Active Substance: ACETAMINOPHEN
     Indication: PRODUCT USED FOR UNKNOWN INDICATION
     Dosage: UNK
     Route: 065
     Dates: start: 20200102, end: 20200214
  58. PIRITON [Concomitant]
     Active Substance: CHLORPHENIRAMINE MALEATE
     Dosage: UNK
     Route: 065
     Dates: start: 20200118, end: 20200126
  59. LASIX [Concomitant]
     Active Substance: FUROSEMIDE
     Dosage: UNK
     Route: 065
     Dates: start: 20200114, end: 20200114
  60. LASIX [Concomitant]
     Active Substance: FUROSEMIDE
     Dosage: UNK
     Route: 065
     Dates: start: 20200123, end: 20200123
  61. SULPERAZON [Concomitant]
     Active Substance: CEFOPERAZONE SODIUM\SULBACTAM SODIUM
     Indication: PNEUMONIA
     Dosage: UNK
     Route: 065
     Dates: start: 20200203, end: 20200206
  62. CHLORHEXIDINE GLUCONATE. [Concomitant]
     Active Substance: CHLORHEXIDINE GLUCONATE
     Indication: PROPHYLAXIS
     Dosage: UNK
     Route: 065
     Dates: start: 20200211, end: 20200213
  63. ACTRAPID [Concomitant]
     Active Substance: INSULIN HUMAN
     Dosage: UNK
     Route: 065
     Dates: start: 20200214, end: 20200214
  64. NEXIUM [Concomitant]
     Active Substance: ESOMEPRAZOLE MAGNESIUM
     Indication: PROPHYLAXIS
  65. ETOPOSIDE. [Concomitant]
     Active Substance: ETOPOSIDE
     Indication: LEUKOCYTOSIS
     Dosage: UNK
     Route: 065
     Dates: start: 20200207, end: 20200207
  66. POSACONAZOLE [Concomitant]
     Active Substance: POSACONAZOLE
     Indication: ANTIFUNGAL PROPHYLAXIS
     Dosage: UNK
     Route: 065
     Dates: start: 20191230, end: 20200202
  67. ZARZIO [Concomitant]
     Active Substance: FILGRASTIM
     Dosage: UNK
     Route: 065
     Dates: start: 20200121, end: 20200121
  68. ZARZIO [Concomitant]
     Active Substance: FILGRASTIM
     Dosage: UNK
     Route: 065
     Dates: start: 20200131, end: 20200131
  69. TRANSAMIN [Concomitant]
     Active Substance: TRANEXAMIC ACID
     Dosage: UNK
     Route: 065
     Dates: start: 20200120, end: 20200126
  70. TRANSAMIN [Concomitant]
     Active Substance: TRANEXAMIC ACID
     Dosage: UNK
     Route: 065
     Dates: start: 20200126, end: 20200129
  71. TRANSAMIN [Concomitant]
     Active Substance: TRANEXAMIC ACID
     Dosage: UNK
     Route: 065
     Dates: start: 20200201, end: 20200205
  72. PIRITON [Concomitant]
     Active Substance: CHLORPHENIRAMINE MALEATE
     Indication: PREMEDICATION
     Dosage: UNK
     Route: 065
     Dates: start: 20200108, end: 20200108
  73. LASIX [Concomitant]
     Active Substance: FUROSEMIDE
     Dosage: UNK
     Route: 065
     Dates: start: 20200111, end: 20200111
  74. FORTUM [Concomitant]
     Active Substance: CEFTAZIDIME
     Indication: PNEUMONIA
     Dosage: UNK
     Route: 065
     Dates: start: 20200109, end: 20200112
  75. RASBURICASE [Concomitant]
     Active Substance: RASBURICASE
     Indication: SUPPORTIVE CARE
     Dosage: UNK
     Route: 065
     Dates: start: 20200207, end: 20200208
  76. ZARZIO [Concomitant]
     Active Substance: FILGRASTIM
     Dosage: UNK
     Route: 065
     Dates: start: 20200123, end: 20200123
  77. PIRITON [Concomitant]
     Active Substance: CHLORPHENIRAMINE MALEATE
     Indication: PREMEDICATION
     Dosage: UNK
     Route: 065
     Dates: start: 20200105, end: 20200106
  78. LASIX [Concomitant]
     Active Substance: FUROSEMIDE
     Dosage: UNK
     Route: 065
     Dates: start: 20200201, end: 20200201
  79. LASIX [Concomitant]
     Active Substance: FUROSEMIDE
     Dosage: UNK
     Route: 065
     Dates: start: 20200208, end: 20200209
  80. TIMENTIN [Concomitant]
     Active Substance: CLAVULANATE POTASSIUM\TICARCILLIN DISODIUM
     Dosage: UNK
     Route: 065
     Dates: start: 20200128, end: 20200130
  81. DOXYCYCLINE HYCLATE. [Concomitant]
     Active Substance: DOXYCYCLINE HYCLATE
     Dosage: UNK
     Route: 065
     Dates: start: 20200204, end: 20200205
  82. TAZOCIN [Concomitant]
     Active Substance: PIPERACILLIN SODIUM\TAZOBACTAM SODIUM
     Indication: PNEUMONIA
     Dosage: UNK
     Route: 065
     Dates: start: 20200112, end: 20200122
  83. VITAMIN K [Concomitant]
     Active Substance: PHYTONADIONE
     Indication: COAGULATION TIME
     Dosage: UNK
     Route: 065
     Dates: start: 20200203
  84. MORPHINE SULPHATE [Concomitant]
     Active Substance: MORPHINE SULFATE
     Indication: PAIN
     Dosage: UNK
     Route: 065
     Dates: start: 20200206, end: 20200206

REACTIONS (2)
  - Pleural effusion [Fatal]
  - Pneumonitis [Fatal]

NARRATIVE: CASE EVENT DATE: 20200127
